FAERS Safety Report 17269869 (Version 2)
Quarter: 2020Q2

REPORT INFORMATION
  Report Type: Report from Study
  Country: US (occurrence: US)
  Receive Date: 20200114
  Receipt Date: 20200623
  Transmission Date: 20200713
  Serious: Yes (Hospitalization)
  Sender: FDA-Public Use
  Company Number: US-ACTELION-A-NJ2019-191257

PATIENT
  Age: 81 Year
  Sex: Female

DRUGS (2)
  1. VENTAVIS [Suspect]
     Active Substance: ILOPROST
     Indication: PULMONARY ARTERIAL HYPERTENSION
     Dosage: 5 MCG, INHALED 6 TO 9 TIMES A DAY
     Route: 055
     Dates: start: 201407
  2. VENTAVIS [Suspect]
     Active Substance: ILOPROST
     Dosage: 5 MCG, 6X^S/DAY
     Route: 055
     Dates: start: 201404

REACTIONS (7)
  - Chest pain [Not Recovered/Not Resolved]
  - Rectal haemorrhage [Unknown]
  - Device malfunction [Not Recovered/Not Resolved]
  - Palpitations [Not Recovered/Not Resolved]
  - Feeling abnormal [Not Recovered/Not Resolved]
  - Product dose omission [Not Recovered/Not Resolved]
  - Pleural effusion [Unknown]

NARRATIVE: CASE EVENT DATE: 20190924
